FAERS Safety Report 11075185 (Version 1)
Quarter: 2015Q2

REPORT INFORMATION
  Report Type: Spontaneous
  Country: US (occurrence: US)
  Receive Date: 20150429
  Receipt Date: 20150429
  Transmission Date: 20150821
  Serious: Yes (Death, Hospitalization, Other)
  Sender: FDA-Public Use
  Company Number: US-SA-2015SA051972

PATIENT
  Age: 72 Year
  Sex: Male

DRUGS (7)
  1. ASPIRIN. [Concomitant]
     Active Substance: ASPIRIN
  2. LEVEMIR [Concomitant]
     Active Substance: INSULIN DETEMIR
  3. ALLOPURINOL. [Concomitant]
     Active Substance: ALLOPURINOL
  4. GABAPENTIN. [Concomitant]
     Active Substance: GABAPENTIN
  5. VITAMIN D [Concomitant]
     Active Substance: CHOLECALCIFEROL
  6. LASIX [Suspect]
     Active Substance: FUROSEMIDE
     Route: 065
  7. HUMALOG [Concomitant]
     Active Substance: INSULIN LISPRO

REACTIONS (3)
  - Death [Fatal]
  - Myocardial infarction [Not Recovered/Not Resolved]
  - Renal disorder [Unknown]

NARRATIVE: CASE EVENT DATE: 20141216
